FAERS Safety Report 7646411-2 (Version None)
Quarter: 2011Q3

REPORT INFORMATION
  Report Type: 
  Country: None (occurrence: None)
  Receive Date: 20110801
  Receipt Date: 20110719
  Transmission Date: 20111222
  Serious: Yes (Other)
  Sender: FDA-Public Use
  Company Number: US-JNJFOC-20110503106

PATIENT
  Sex: Male
  Weight: 81.19 kg

DRUGS (5)
  1. SOLU-MEDROL [Concomitant]
     Indication: PROPHYLAXIS
     Route: 042
  2. IMURAN [Concomitant]
     Indication: COLITIS ULCERATIVE
     Route: 048
  3. ACETAMINOPHEN [Concomitant]
     Indication: PROPHYLAXIS
     Route: 065
  4. REMICADE [Suspect]
     Indication: COLITIS ULCERATIVE
     Route: 042
     Dates: start: 20110425
  5. BENADRYL [Concomitant]
     Indication: PROPHYLAXIS
     Route: 042

REACTIONS (3)
  - FEELING ABNORMAL [None]
  - PARAESTHESIA [None]
  - VISION BLURRED [None]
